FAERS Safety Report 17290491 (Version 6)
Quarter: 2021Q1

REPORT INFORMATION
  Report Type: Report from Study
  Country: None (occurrence: US)
  Receive Date: 20200121
  Receipt Date: 20210112
  Transmission Date: 20210419
  Serious: Yes (Other)
  Sender: FDA-Public Use
  Company Number: US-ABBVIE-20K-163-3235265-00

PATIENT
  Sex: Male
  Weight: 106.69 kg

DRUGS (3)
  1. HUMIRA [Suspect]
     Active Substance: ADALIMUMAB
     Indication: COLITIS ULCERATIVE
     Route: 058
     Dates: start: 201911, end: 201912
  2. ATENOLOL. [Concomitant]
     Active Substance: ATENOLOL
     Indication: BLOOD PRESSURE MEASUREMENT
  3. HUMIRA [Suspect]
     Active Substance: ADALIMUMAB
     Indication: RHEUMATOID ARTHRITIS
     Dosage: CITRATE FREE
     Route: 058
     Dates: start: 201912

REACTIONS (9)
  - Gastrointestinal neoplasm [Recovering/Resolving]
  - Neuroendocrine tumour [Recovering/Resolving]
  - Joint swelling [Recovered/Resolved]
  - Flatulence [Recovering/Resolving]
  - Carcinoid tumour of the liver [Recovering/Resolving]
  - Intentional product misuse [Unknown]
  - Gastrointestinal carcinoma [Unknown]
  - Hepatic cancer [Unknown]
  - Abdominal discomfort [Recovering/Resolving]

NARRATIVE: CASE EVENT DATE: 2019
